FAERS Safety Report 18751412 (Version 2)
Quarter: 2021Q3

REPORT INFORMATION
  Report Type: Report from Study
  Country: US (occurrence: US)
  Receive Date: 20210118
  Receipt Date: 20210816
  Transmission Date: 20211014
  Serious: No
  Sender: FDA-Public Use
  Company Number: US-TAKEDA-2021TUS002758

PATIENT
  Sex: Male
  Weight: 99.79 kg

DRUGS (19)
  1. DIPHENHYDRAMINE. [Concomitant]
     Active Substance: DIPHENHYDRAMINE
  2. LIDOCAINE. [Concomitant]
     Active Substance: LIDOCAINE
  3. AZELASTINE. [Concomitant]
     Active Substance: AZELASTINE HYDROCHLORIDE
  4. METFORMIN [Concomitant]
     Active Substance: METFORMIN HYDROCHLORIDE
  5. PREDNISONE. [Concomitant]
     Active Substance: PREDNISONE
  6. OMEPRAZOLE. [Concomitant]
     Active Substance: OMEPRAZOLE
  7. CALCIUM + D3 [CALCIUM CARBONATE;COLECALCIFEROL] [Concomitant]
  8. PYRIDOSTIGMINE [Concomitant]
     Active Substance: PYRIDOSTIGMINE
  9. CUVITRU [Suspect]
     Active Substance: HUMAN IMMUNOGLOBULIN G
     Indication: CHRONIC HEPATITIS C
     Dosage: 40 GRAM, 1/WEEK
     Route: 058
     Dates: start: 20210108
  10. FIBER LAX [Concomitant]
     Active Substance: CALCIUM POLYCARBOPHIL
  11. VITAMIN B12 [Concomitant]
     Active Substance: CYANOCOBALAMIN
  12. ACETAMINOPHEN. [Concomitant]
     Active Substance: ACETAMINOPHEN
  13. DILTIAZEM. [Concomitant]
     Active Substance: DILTIAZEM
  14. VITAMIN D2 [Concomitant]
     Active Substance: ERGOCALCIFEROL
  15. KETOCONAZOLE. [Concomitant]
     Active Substance: KETOCONAZOLE
  16. FOLIC ACID B?6 + B?12 [Concomitant]
     Active Substance: CYANOCOBALAMIN\FOLIC ACID\PYRIDOXINE
  17. BACTRIM [Concomitant]
     Active Substance: SULFAMETHOXAZOLE\TRIMETHOPRIM
  18. CUVITRU [Suspect]
     Active Substance: HUMAN IMMUNOGLOBULIN G
     Indication: MYASTHENIA GRAVIS
  19. EPINEPHRINE. [Concomitant]
     Active Substance: EPINEPHRINE

REACTIONS (3)
  - Localised infection [Unknown]
  - Infusion site haemorrhage [Unknown]
  - Infusion site discolouration [Unknown]
